FAERS Safety Report 12715545 (Version 1)
Quarter: 2016Q3

REPORT INFORMATION
  Report Type: Spontaneous
  Country: CH (occurrence: CH)
  Receive Date: 20160906
  Receipt Date: 20160906
  Transmission Date: 20161109
  Serious: Yes (Hospitalization, Other)
  Sender: FDA-Public Use
  Company Number: CH-ORION CORPORATION ORION PHARMA-16_00001866

PATIENT
  Age: 56 Year
  Sex: Male

DRUGS (11)
  1. ASPIRIN CARDIO [Concomitant]
     Active Substance: ASPIRIN
     Dosage: 1-0-0-0
     Route: 065
  2. LOPERAMID-MEPHA [Concomitant]
     Dosage: 1-1-1-1
     Route: 065
  3. NOVALGIN [Concomitant]
     Active Substance: METAMIZOLE SODIUM
     Route: 065
  4. MOTILIUM [Concomitant]
     Active Substance: DOMPERIDONE
     Route: 065
  5. METHOTREXATE. [Suspect]
     Active Substance: METHOTREXATE
     Indication: PSORIASIS
     Route: 048
     Dates: start: 201606, end: 20160725
  6. PANTOZOL [Concomitant]
     Active Substance: PANTOPRAZOLE SODIUM
     Dosage: 1-0-0-0
     Route: 065
  7. SEROQUEL [Concomitant]
     Active Substance: QUETIAPINE FUMARATE
     Dosage: 0-0-0-1
     Route: 065
  8. SIMVASIN SPIRIG [Concomitant]
     Dosage: 0-0-1-0
     Route: 065
  9. DAFALGAN [Concomitant]
     Active Substance: ACETAMINOPHEN
     Route: 065
  10. ECOMUCYL [Concomitant]
     Dosage: 1-0-0-0
     Route: 065
  11. CITALOPRAM [Concomitant]
     Active Substance: CITALOPRAM HYDROBROMIDE
     Dosage: 1.5-0-0-0
     Route: 065

REACTIONS (23)
  - Gastrointestinal haemorrhage [Unknown]
  - Toxic encephalopathy [Unknown]
  - Abdominal pain [Unknown]
  - Acute kidney injury [Not Recovered/Not Resolved]
  - Diarrhoea haemorrhagic [Unknown]
  - Leukopenia [Not Recovered/Not Resolved]
  - Neutropenic colitis [Unknown]
  - Overdose [Unknown]
  - Inappropriate schedule of drug administration [Unknown]
  - Pain [Unknown]
  - Thrombocytopenia [Not Recovered/Not Resolved]
  - Transaminases increased [Unknown]
  - Metabolic encephalopathy [Unknown]
  - Anaemia [Not Recovered/Not Resolved]
  - Confusional state [Unknown]
  - Somnolence [Unknown]
  - C-reactive protein increased [Unknown]
  - General physical health deterioration [Unknown]
  - Liver disorder [Not Recovered/Not Resolved]
  - Sepsis [Not Recovered/Not Resolved]
  - Toxicity to various agents [Unknown]
  - Hypotension [Unknown]
  - Mucosal inflammation [Not Recovered/Not Resolved]

NARRATIVE: CASE EVENT DATE: 201606
